FAERS Safety Report 9408655 (Version 1)
Quarter: 2013Q3

REPORT INFORMATION
  Report Type: Report from Study
  Country: US (occurrence: US)
  Receive Date: 20130718
  Receipt Date: 20130718
  Transmission Date: 20140515
  Serious: Yes (Other)
  Sender: FDA-Public Use
  Company Number: US-ABBOTT-13P-163-1117709-00

PATIENT
  Sex: Female
  Weight: 89.44 kg

DRUGS (20)
  1. HUMIRA [Suspect]
     Indication: RHEUMATOID ARTHRITIS
     Route: 058
     Dates: start: 2007, end: 200808
  2. HUMIRA [Suspect]
     Route: 058
     Dates: start: 200809, end: 200811
  3. HUMIRA [Suspect]
     Route: 058
     Dates: start: 200812, end: 2011
  4. HUMIRA [Suspect]
     Route: 058
     Dates: start: 2011, end: 201211
  5. HUMIRA [Suspect]
     Route: 058
     Dates: start: 201301, end: 201306
  6. HUMIRA [Suspect]
     Route: 058
     Dates: start: 201306
  7. METHOTREXATE [Concomitant]
     Indication: RHEUMATOID ARTHRITIS
  8. FOLIC ACID [Concomitant]
     Indication: VITAMIN SUPPLEMENTATION
     Dosage: 1 IN 1 DAY EXCEPT MONDAYS
  9. METFORMIN [Concomitant]
     Indication: DIABETES MELLITUS
  10. DIOVAN [Concomitant]
     Indication: PROPHYLAXIS
  11. DIOVAN [Concomitant]
     Indication: PROPHYLAXIS
  12. GLIPIZIDE [Concomitant]
     Indication: DIABETES MELLITUS
  13. VENLAFAXINE [Concomitant]
     Indication: PRODUCT USED FOR UNKNOWN INDICATION
  14. ATORVASTATIN [Concomitant]
     Indication: RENAL DISORDER
  15. ATORVASTATIN [Concomitant]
     Indication: RENAL DISORDER
  16. COQ10 [Concomitant]
     Indication: PRODUCT USED FOR UNKNOWN INDICATION
  17. VITAMIN B COMPLEX [Concomitant]
     Indication: PRODUCT USED FOR UNKNOWN INDICATION
  18. VIT D [Concomitant]
     Indication: PRODUCT USED FOR UNKNOWN INDICATION
  19. OCUVITE [Concomitant]
     Indication: PRODUCT USED FOR UNKNOWN INDICATION
  20. MULTIVITAMIN [Concomitant]
     Indication: PRODUCT USED FOR UNKNOWN INDICATION

REACTIONS (6)
  - Osteoarthritis [Recovered/Resolved]
  - Arthralgia [Recovered/Resolved]
  - Rheumatoid arthritis [Not Recovered/Not Resolved]
  - Muscle injury [Not Recovered/Not Resolved]
  - Device dislocation [Recovered/Resolved]
  - Bone disorder [Not Recovered/Not Resolved]
